FAERS Safety Report 9947481 (Version 1)
Quarter: 2014Q1

REPORT INFORMATION
  Report Type: Report from Study
  Country: US (occurrence: US)
  Receive Date: 20140303
  Receipt Date: 20140303
  Transmission Date: 20141002
  Serious: No
  Sender: FDA-Public Use
  Company Number: US-ABBVIE-13P-163-1062291-00

PATIENT
  Age: 24 Year
  Sex: Male

DRUGS (7)
  1. HUMIRA [Suspect]
     Indication: CROHN^S DISEASE
     Dates: start: 201206
  2. NEXIUM [Concomitant]
     Indication: PRODUCT USED FOR UNKNOWN INDICATION
  3. LYRICA [Concomitant]
     Indication: NEURALGIA
     Dosage: 400 MG DAILY
  4. LYRICA [Concomitant]
     Indication: NEUROPATHY PERIPHERAL
  5. TRAZODONE [Concomitant]
     Indication: INSOMNIA
     Dosage: AT BEDTIME
  6. SUBOXONE [Concomitant]
     Indication: DRUG DEPENDENCE
  7. SUBOXONE [Concomitant]
     Indication: PAIN

REACTIONS (3)
  - Chapped lips [Unknown]
  - Rash [Not Recovered/Not Resolved]
  - Pruritus [Unknown]
